FAERS Safety Report 8212854-1 (Version None)
Quarter: 2012Q1

REPORT INFORMATION
  Report Type: 
  Country: None (occurrence: None)
  Receive Date: 20120315
  Receipt Date: 20120313
  Transmission Date: 20120608
  Serious: Yes (Life-Threatening, Hospitalization)
  Sender: FDA-Public Use
  Company Number: JP-BRACCO-005681

PATIENT
  Sex: Male
  Weight: 78 kg

DRUGS (6)
  1. IOPAMIDOL [Suspect]
     Indication: COMPUTERISED TOMOGRAM CORONARY ARTERY
     Route: 042
     Dates: start: 20120214, end: 20120214
  2. NORVASC [Concomitant]
     Indication: ANGINA PECTORIS
  3. ASPIRIN [Concomitant]
     Indication: ANGINA PECTORIS
  4. IOPAMIDOL [Suspect]
     Indication: ANGINA PECTORIS
     Route: 042
     Dates: start: 20120214, end: 20120214
  5. PLAVIX [Concomitant]
     Indication: ANGINA PECTORIS
  6. METFORMIN HCL [Concomitant]
     Indication: DIABETES MELLITUS

REACTIONS (2)
  - ANAPHYLACTIC SHOCK [None]
  - GASTRIC ULCER [None]
